FAERS Safety Report 14597247 (Version 2)
Quarter: 2018Q3

REPORT INFORMATION
  Report Type: Spontaneous
  Country: US (occurrence: US)
  Receive Date: 20180305
  Receipt Date: 20180729
  Transmission Date: 20181010
  Serious: No
  Sender: FDA-Public Use
  Company Number: US-JNJFOC-20180208326

PATIENT
  Sex: Male

DRUGS (6)
  1. RISPERDAL [Suspect]
     Active Substance: RISPERIDONE
     Indication: PRODUCT USED FOR UNKNOWN INDICATION
     Dosage: TOTAL DOSE IS 3 MG AND 2.25 MG PRN
     Route: 048
  2. LITHOBID [Concomitant]
     Active Substance: LITHIUM CARBONATE
     Route: 065
  3. PROPYLTHIOURACIL. [Concomitant]
     Active Substance: PROPYLTHIOURACIL
     Route: 065
  4. LITHOBID [Concomitant]
     Active Substance: LITHIUM CARBONATE
     Dosage: EXTENDED RELEASE, IN PM
     Route: 065
  5. LITHOBID [Concomitant]
     Active Substance: LITHIUM CARBONATE
     Dosage: EXTENDED RELEASE, IN AM
     Route: 065
  6. KLONOPIN [Concomitant]
     Active Substance: CLONAZEPAM
     Indication: AGITATION
     Dosage: 1 TABLET AT BED TIME,TWICE A DAY, PRN AGITATION
     Route: 065

REACTIONS (5)
  - Adverse event [Unknown]
  - Mental disorder [Unknown]
  - Gynaecomastia [Unknown]
  - Chest pain [Unknown]
  - Dyspnoea [Unknown]
